FAERS Safety Report 9319664 (Version 1)
Quarter: 2013Q1

REPORT INFORMATION
  Report Type: Spontaneous
  Country: US (occurrence: None)
  Receive Date: 20121128
  Receipt Date: 20121128
  Transmission Date: 20140127
  Serious: Yes (Other)
  Sender: FDA-Public Use
  Company Number: 2012P1058357

PATIENT
  Age: 27 Year
  Sex: Male
  Weight: 84.82 kg

DRUGS (5)
  1. HYDROMORPHONE [Suspect]
     Indication: PAIN
     Route: 030
     Dates: start: 201109, end: 201205
  2. ONDANSETRON [Concomitant]
  3. DILAUDID [Concomitant]
  4. CABERGOLINE [Concomitant]
  5. AMITRIPTYLINE [Concomitant]

REACTIONS (9)
  - Langerhans^ cell histiocytosis [None]
  - Cerebrovascular accident [None]
  - Abdominal pain [None]
  - Chest pain [None]
  - Blood prolactin increased [None]
  - Blood testosterone decreased [None]
  - Injection site pain [None]
  - Injection site pain [None]
  - Headache [None]
